FAERS Safety Report 13442153 (Version 1)
Quarter: 2017Q2

REPORT INFORMATION
  Report Type: Spontaneous
  Country: US (occurrence: US)
  Receive Date: 20170414
  Receipt Date: 20170414
  Transmission Date: 20170830
  Serious: No
  Sender: FDA-Public Use
  Company Number: US-ALKEM LABORATORIES LIMITED-US-ALKEM-2017-00140

PATIENT
  Sex: Female

DRUGS (1)
  1. CEFUROXIME AXETIL. [Suspect]
     Active Substance: CEFUROXIME AXETIL
     Indication: SINUSITIS
     Dosage: UNKNOWN

REACTIONS (3)
  - Nausea [Unknown]
  - Pyrexia [Recovered/Resolved]
  - Chills [Unknown]
